FAERS Safety Report 7990520-5 (Version None)
Quarter: 2011Q4

REPORT INFORMATION
  Report Type: 
  Country: None (occurrence: None)
  Receive Date: 20111219
  Receipt Date: 20110309
  Transmission Date: 20120403
  Serious: No
  Sender: FDA-Public Use
  Company Number: US-ASTRAZENECA-2011SE13104

PATIENT
  Age: 69 Year
  Sex: Female

DRUGS (1)
  1. CRESTOR [Suspect]
     Route: 048
     Dates: start: 20100924, end: 20100925

REACTIONS (7)
  - GAIT DISTURBANCE [None]
  - AMNESIA [None]
  - ASTHENIA [None]
  - HEADACHE [None]
  - INFLUENZA [None]
  - MYALGIA [None]
  - PAIN IN EXTREMITY [None]
